FAERS Safety Report 10662626 (Version 2)
Quarter: 2014Q4

REPORT INFORMATION
  Report Type: Spontaneous
  Country: BR (occurrence: BR)
  Receive Date: 20141218
  Receipt Date: 20141231
  Transmission Date: 20150529
  Serious: Yes (Other)
  Sender: FDA-Public Use
  Company Number: BR-SA-2014SA170970

PATIENT
  Age: 30 Year
  Sex: Female

DRUGS (1)
  1. ELOXATIN [Suspect]
     Active Substance: OXALIPLATIN
     Indication: RECTAL CANCER
     Dosage: FREQUENCY: EVERY 14 DAYS
     Route: 042
     Dates: start: 20141202, end: 20141202

REACTIONS (3)
  - Dyspnoea [Recovered/Resolved]
  - Hypoaesthesia [Recovered/Resolved]
  - Vital functions abnormal [Recovered/Resolved]

NARRATIVE: CASE EVENT DATE: 20141202
